FAERS Safety Report 20903084 (Version 1)
Quarter: 2022Q2

REPORT INFORMATION
  Report Type: Spontaneous
  Country: US (occurrence: US)
  Receive Date: 20220601
  Receipt Date: 20220601
  Transmission Date: 20220721
  Serious: No
  Sender: FDA-Public Use
  Company Number: US-SEPTODONT-2021006512

PATIENT

DRUGS (1)
  1. SEPTOCAINE [Suspect]
     Active Substance: ARTICAINE HYDROCHLORIDE\EPINEPHRINE BITARTRATE
     Indication: Tooth extraction
     Dosage: 2-3 CARPULES
     Route: 004
     Dates: start: 20210826, end: 20210826

REACTIONS (1)
  - Drug ineffective [Recovered/Resolved]
